FAERS Safety Report 6431576-0 (Version None)
Quarter: 2009Q4

REPORT INFORMATION
  Report Type: 
  Country: None (occurrence: None)
  Receive Date: 20091106
  Receipt Date: 20091028
  Transmission Date: 20100525
  Serious: Yes (Death, Hospitalization)
  Sender: FDA-Public Use
  Company Number: US-AMGEN-STX365156

PATIENT
  Age: 59 Year
  Sex: Male

DRUGS (7)
  1. VECTIBIX [Suspect]
     Indication: COLORECTAL CANCER
     Route: 042
     Dates: end: 20090914
  2. OXALIPLATIN [Suspect]
     Dates: end: 20090101
  3. LEUCOVORIN [Concomitant]
     Dates: end: 20090914
  4. FLUOROURACIL [Concomitant]
     Dates: end: 20090914
  5. ZOFRAN [Concomitant]
     Dates: end: 20090914
  6. TYLENOL [Concomitant]
     Dates: end: 20090914
  7. COMPAZINE [Concomitant]
     Dates: end: 20090914

REACTIONS (5)
  - ANAPHYLACTIC REACTION [None]
  - BRADYPNOEA [None]
  - HYPERHIDROSIS [None]
  - HYPOTENSION [None]
  - INFUSION RELATED REACTION [None]
